FAERS Safety Report 15049421 (Version 1)
Quarter: 2018Q2

REPORT INFORMATION
  Report Type: Spontaneous
  Country: US (occurrence: US)
  Receive Date: 20180622
  Receipt Date: 20180622
  Transmission Date: 20180711
  Serious: Yes (Hospitalization, Other)
  Sender: FDA-Public Use
  Company Number: US-TEVA-2018-US-910628

PATIENT
  Age: 90 Year
  Sex: Female

DRUGS (6)
  1. ESCITALOPRAM [Suspect]
     Active Substance: ESCITALOPRAM OXALATE
     Indication: EMOTIONAL DISORDER
  2. CARVEDILOL. [Concomitant]
     Active Substance: CARVEDILOL
  3. ESCITALOPRAM [Suspect]
     Active Substance: ESCITALOPRAM OXALATE
     Indication: DEPRESSION
     Dosage: 10 MILLIGRAM DAILY;
     Route: 048
     Dates: start: 2013, end: 20180501
  4. TRAMADOL. [Suspect]
     Active Substance: TRAMADOL
     Indication: PAIN
     Dates: start: 20180425, end: 20180430
  5. HYDROCODONE BITARTRATE AND ACETAMINOPHEN [Suspect]
     Active Substance: ACETAMINOPHEN\HYDROCODONE BITARTRATE
     Indication: PAIN
     Dosage: 7.5 MG/325 MG
     Dates: start: 201804, end: 201804
  6. BENICAR [Concomitant]
     Active Substance: OLMESARTAN MEDOXOMIL

REACTIONS (8)
  - Upper limb fracture [Unknown]
  - Humerus fracture [Unknown]
  - Feeling abnormal [Not Recovered/Not Resolved]
  - Hip arthroplasty [Unknown]
  - Abnormal dreams [Recovering/Resolving]
  - Head injury [Unknown]
  - Hallucination [Recovered/Resolved]
  - Fall [Unknown]

NARRATIVE: CASE EVENT DATE: 2018
